FAERS Safety Report 19718419 (Version 1)
Quarter: 2021Q3

REPORT INFORMATION
  Report Type: Spontaneous
  Country: US (occurrence: US)
  Receive Date: 20210818
  Receipt Date: 20210818
  Transmission Date: 20211014
  Serious: Yes (Other)
  Sender: FDA-Public Use
  Company Number: NVSC2021US184808

PATIENT
  Age: 52 Year
  Sex: Male
  Weight: 73.5 kg

DRUGS (1)
  1. KYMRIAH [Suspect]
     Active Substance: TISAGENLECLEUCEL
     Indication: DIFFUSE LARGE B-CELL LYMPHOMA
     Dosage: UNK, ONCE/SINGLE
     Route: 065
     Dates: start: 20210429

REACTIONS (13)
  - Pyrexia [Unknown]
  - Fatigue [Unknown]
  - Encephalopathy [Unknown]
  - Depressed level of consciousness [Unknown]
  - Multi-organ disorder [Unknown]
  - Confusional state [Unknown]
  - Disorientation [Unknown]
  - Neurotoxicity [Unknown]
  - Cytokine release syndrome [Unknown]
  - Somnolence [Unknown]
  - Immune effector cell-associated neurotoxicity syndrome [Unknown]
  - Decreased appetite [Unknown]
  - Agitation [Unknown]

NARRATIVE: CASE EVENT DATE: 20210430
